FAERS Safety Report 19367533 (Version 2)
Quarter: 2021Q2

REPORT INFORMATION
  Report Type: Spontaneous
  Country: US (occurrence: US)
  Receive Date: 20210602
  Receipt Date: 20210614
  Transmission Date: 20210717
  Serious: No
  Sender: FDA-Public Use
  Company Number: US-SUNOVION-2021SUN002007

PATIENT
  Age: 54 Year
  Sex: Female

DRUGS (1)
  1. APTIOM [Suspect]
     Active Substance: ESLICARBAZEPINE ACETATE
     Indication: BRAIN INJURY
     Dosage: 800 MG, QD
     Route: 048

REACTIONS (2)
  - Speech disorder [Unknown]
  - Off label use [Unknown]
